FAERS Safety Report 4579826-X (Version None)
Quarter: 2005Q1

REPORT INFORMATION
  Report Type: 
  Country: None (occurrence: None)
  Receive Date: 20050210
  Receipt Date: 20041208
  Transmission Date: 20050727
  Serious: Yes (Other)
  Sender: FDA-Public Use
  Company Number: 2005020410

PATIENT
  Age: 62 Year
  Sex: Female
  Weight: 64 kg

DRUGS (3)
  1. CELECOXIB (CELECOXIB) [Suspect]
     Indication: OSTEOARTHRITIS
     Dosage: (100 MG) ORAL
     Route: 048
     Dates: start: 20041020, end: 20041130
  2. ATENOLOL [Concomitant]
  3. DIVINA (ESTRADIOL VALEARATE, MEDROXYPROGESTERONE ACETATE) [Concomitant]

REACTIONS (4)
  - DEPRESSION [None]
  - EYE PRURITUS [None]
  - PAIN IN EXTREMITY [None]
  - SOMNOLENCE [None]
